FAERS Safety Report 18709418 (Version 1)
Quarter: 2021Q1

REPORT INFORMATION
  Report Type: Spontaneous
  Country: IT (occurrence: IT)
  Receive Date: 20210106
  Receipt Date: 20210106
  Transmission Date: 20210419
  Serious: Yes (Other)
  Sender: FDA-Public Use
  Company Number: IT-TEVA-2020-IT-1865527

PATIENT
  Age: 54 Year
  Sex: Male

DRUGS (4)
  1. EN [Concomitant]
     Active Substance: DELORAZEPAM
  2. QUETIAPINE. [Concomitant]
     Active Substance: QUETIAPINE
  3. RAMIPRIL. [Suspect]
     Active Substance: RAMIPRIL
     Indication: HYPERTENSION
     Dosage: UNIT DOSE : 10 MG,
     Route: 048
     Dates: start: 20190916, end: 20200916
  4. NIFEDIPINE. [Suspect]
     Active Substance: NIFEDIPINE
     Indication: HYPERTENSION
     Dosage: UNIT DOSE : 1 DOSAGE FORMS
     Route: 048
     Dates: start: 20190916, end: 20200916

REACTIONS (2)
  - Hypertensive crisis [Recovering/Resolving]
  - Intentional product misuse [Recovering/Resolving]

NARRATIVE: CASE EVENT DATE: 20200923
